FAERS Safety Report 9333237 (Version 1)
Quarter: 2013Q2

REPORT INFORMATION
  Report Type: Spontaneous
  Country: GB (occurrence: GB)
  Receive Date: 20130606
  Receipt Date: 20130606
  Transmission Date: 20140414
  Serious: Yes (Other)
  Sender: FDA-Public Use
  Company Number: GB-TEVA-409442ISR

PATIENT
  Age: 65 Year
  Sex: Female

DRUGS (4)
  1. RISPERIDONE [Suspect]
     Dosage: COMPLIANCE INTERMITTENT, BECAME REGULAR AFTER 2 MONTHS
     Route: 065
  2. RISPERIDONE [Suspect]
     Dosage: 2 MILLIGRAM DAILY; DURATION: 2 MONTHS
     Route: 065
  3. SALBUTAMOL [Concomitant]
     Indication: CHRONIC OBSTRUCTIVE PULMONARY DISEASE
     Route: 055
  4. TIOTROPIUM BROMIDE [Concomitant]
     Indication: CHRONIC OBSTRUCTIVE PULMONARY DISEASE
     Route: 055

REACTIONS (1)
  - Cystoid macular oedema [Recovered/Resolved]
